FAERS Safety Report 5452161-3 (Version None)
Quarter: 2007Q3

REPORT INFORMATION
  Report Type: 
  Country: None (occurrence: None)
  Receive Date: 20070912
  Receipt Date: 20070912
  Transmission Date: 20080115
  Serious: Yes (Hospitalization)
  Sender: FDA-Public Use
  Company Number: None

PATIENT
  Age: 35 Year
  Sex: Male

DRUGS (1)
  1. LEVAQUIN [Suspect]
     Indication: INFECTION
     Dosage: 1 TAB DAILY PO X1
     Route: 048
     Dates: start: 20070831

REACTIONS (2)
  - PARAESTHESIA ORAL [None]
  - SWELLING FACE [None]
